FAERS Safety Report 7177182-4 (Version None)
Quarter: 2010Q4

REPORT INFORMATION
  Report Type: 
  Country: None (occurrence: None)
  Receive Date: 20101220
  Receipt Date: 20101206
  Transmission Date: 20110411
  Serious: Yes (Death, Hospitalization)
  Sender: FDA-Public Use
  Company Number: KR-ROCHE-675492

PATIENT
  Age: 1 Year
  Sex: Female

DRUGS (2)
  1. TAMIFLU [Suspect]
     Route: 065
     Dates: start: 20091116, end: 20091121
  2. TAMIFLU [Suspect]
     Route: 065
     Dates: start: 20091122

REACTIONS (5)
  - ACUTE RESPIRATORY DISTRESS SYNDROME [None]
  - BRAIN INJURY [None]
  - DRUG INEFFECTIVE [None]
  - PATHOGEN RESISTANCE [None]
  - PNEUMONIA [None]
